FAERS Safety Report 10216055 (Version 1)
Quarter: 2014Q2

REPORT INFORMATION
  Report Type: Spontaneous
  Country: US (occurrence: US)
  Receive Date: 20140604
  Receipt Date: 20140604
  Transmission Date: 20141212
  Serious: Yes (Other)
  Sender: FDA-Public Use
  Company Number: US-BEH-2014042879

PATIENT
  Sex: Female
  Weight: 74 kg

DRUGS (26)
  1. HIZENTRA [Suspect]
     Dosage: INFUSE VIA 2-4 SITES OVER 0.5-1.5 HOURS
     Route: 058
  2. HIZENTRA [Suspect]
     Indication: IMMUNODEFICIENCY COMMON VARIABLE
     Dosage: INFUSE VIA 2-4 SITES OVER 0.5-1.5 HOURS
     Route: 058
  3. CAMRESE [Concomitant]
  4. CIPRO [Concomitant]
  5. ZANTAC [Concomitant]
  6. DIPHENHYDRAMINE [Concomitant]
  7. LIDOCAINE/PRILOCAINE [Concomitant]
  8. EPI PEN [Concomitant]
  9. FLEXERIL [Concomitant]
  10. HYDROCODONE ACETAMINOPHEN [Concomitant]
  11. VENTOLIN [Concomitant]
  12. AZELASTINE [Concomitant]
  13. NEURONTIN [Concomitant]
  14. LORTAB [Concomitant]
  15. MULTIVITAMIN [Concomitant]
  16. ALEVE [Concomitant]
  17. MUCINEX [Concomitant]
  18. DIFLUCAN [Concomitant]
  19. ADVAIR [Concomitant]
  20. PRILOSEC [Concomitant]
  21. AMITRIPTYLINE [Concomitant]
  22. ACETAMINOPHEN [Concomitant]
  23. ALBUTEROL [Concomitant]
  24. PROAIR [Concomitant]
  25. DICYCLOMINE [Concomitant]
  26. IBUPROFEN [Concomitant]

REACTIONS (2)
  - Coeliac disease [Unknown]
  - Kidney infection [Unknown]
